FAERS Safety Report 4736043-8 (Version None)
Quarter: 2005Q3

REPORT INFORMATION
  Report Type: 
  Country: None (occurrence: None)
  Receive Date: 20050805
  Receipt Date: 20050518
  Transmission Date: 20060218
  Serious: Yes (Other)
  Sender: FDA-Public Use
  Company Number: US-MERCK-0505USA02277

PATIENT
  Sex: Female
  Weight: 73 kg

DRUGS (5)
  1. VIOXX [Suspect]
     Indication: NECK PAIN
     Route: 048
     Dates: start: 19990825, end: 20030501
  2. PRAVACHOL [Concomitant]
     Indication: BLOOD CHOLESTEROL INCREASED
     Route: 065
  3. LOTREL [Concomitant]
     Indication: HYPERTENSION
     Route: 065
  4. SYNTHROID [Concomitant]
     Indication: THYROID DISORDER
     Route: 065
  5. CELEXA [Concomitant]
     Indication: ANXIETY
     Route: 065

REACTIONS (3)
  - CEREBROVASCULAR ACCIDENT [None]
  - GASTROOESOPHAGEAL REFLUX DISEASE [None]
  - TRANSIENT ISCHAEMIC ATTACK [None]
